FAERS Safety Report 9328689 (Version 1)
Quarter: 2013Q2

REPORT INFORMATION
  Report Type: Spontaneous
  Country: US (occurrence: US)
  Receive Date: 20130604
  Receipt Date: 20130604
  Transmission Date: 20140414
  Serious: Yes (Other)
  Sender: FDA-Public Use
  Company Number: US-SANOFI-AVENTIS-2013SA010057

PATIENT
  Age: 52 Year
  Sex: Female

DRUGS (3)
  1. LANTUS SOLOSTAR [Suspect]
     Dosage: DOSE:30 UNIT(S)
     Route: 058
     Dates: start: 2012
  2. SOLOSTAR [Suspect]
     Dates: start: 2012
  3. EFFIENT [Concomitant]
     Indication: STENT PLACEMENT
     Dates: start: 2012

REACTIONS (5)
  - Hypoglycaemia [Unknown]
  - Tremor [Unknown]
  - Blood glucose increased [Unknown]
  - Expired drug administered [Unknown]
  - Pyrexia [Unknown]
